FAERS Safety Report 5725727-0 (Version None)
Quarter: 2008Q2

REPORT INFORMATION
  Report Type: 
  Country: None (occurrence: None)
  Receive Date: 20080429
  Receipt Date: 20080421
  Transmission Date: 20081010
  Serious: Yes (Other)
  Sender: FDA-Public Use
  Company Number: S08-USA-00948-01

PATIENT
  Age: 31 Year
  Sex: Male

DRUGS (1)
  1. LEXAPRO [Suspect]
     Indication: OBSESSIVE-COMPULSIVE DISORDER
     Dosage: 10 MG QD PO
     Route: 048
     Dates: start: 20040722, end: 20080310

REACTIONS (1)
  - ANGLE CLOSURE GLAUCOMA [None]
